FAERS Safety Report 18763071 (Version 3)
Quarter: 2021Q1

REPORT INFORMATION
  Report Type: Report from Study
  Country: US (occurrence: US)
  Receive Date: 20210120
  Receipt Date: 20210322
  Transmission Date: 20210419
  Serious: Yes (Death, Hospitalization, Other)
  Sender: FDA-Public Use
  Company Number: US-ROCHE-2750585

PATIENT
  Age: 76 Year
  Sex: Female
  Weight: 44.7 kg

DRUGS (2)
  1. OBINUTUZUMAB. [Suspect]
     Active Substance: OBINUTUZUMAB
     Indication: NON-HODGKIN^S LYMPHOMA
     Dosage: DATE OF THE LAST DOSE (1000 MG) OF OBINUTUZUMAB: 24/NOV/2020
     Route: 042
     Dates: start: 20200121
  2. IBRUTINIB [Suspect]
     Active Substance: IBRUTINIB
     Indication: NON-HODGKIN^S LYMPHOMA
     Dosage: DATE OF LAST DOSE ADMINISTERED ON: 05/JAN/2021
     Route: 048
     Dates: start: 20200121

REACTIONS (7)
  - Cognitive disorder [Unknown]
  - Acute kidney injury [Unknown]
  - Clostridium difficile infection [Unknown]
  - Delusion [Unknown]
  - Delirium [Unknown]
  - Colitis [Recovered/Resolved]
  - Death [Fatal]

NARRATIVE: CASE EVENT DATE: 20210106
